FAERS Safety Report 4729422-6 (Version None)
Quarter: 2005Q3

REPORT INFORMATION
  Report Type: 
  Country: None (occurrence: None)
  Receive Date: 20050721
  Receipt Date: 20050614
  Transmission Date: 20060218
  Serious: No
  Sender: FDA-Public Use
  Company Number: 2005SP001406

PATIENT
  Sex: Female

DRUGS (1)
  1. LUNESTA [Suspect]
     Dosage: 1.5 MG;HS;ORAL;  3 MG;HS;ORAL
     Route: 048
     Dates: start: 20050504

REACTIONS (5)
  - AGITATION [None]
  - DRUG INEFFECTIVE [None]
  - FEELING ABNORMAL [None]
  - INITIAL INSOMNIA [None]
  - VOMITING [None]
